FAERS Safety Report 4288690-8 (Version None)
Quarter: 2004Q1

REPORT INFORMATION
  Report Type: 
  Country: None (occurrence: None)
  Receive Date: 20040205
  Receipt Date: 20040119
  Transmission Date: 20041129
  Serious: Yes (Hospitalization)
  Sender: FDA-Public Use
  Company Number: F01200400124

PATIENT
  Age: 76 Year
  Sex: Female

DRUGS (18)
  1. (OXALIPLATIN) - SOLUTION - 85 MG/M2 [Suspect]
     Indication: COLORECTAL CANCER
     Dosage: 85 MG/M2 Q2W, INTRAVENOUS NOS
     Route: 042
     Dates: start: 20031224, end: 20031224
  2. FLUOROURACIL [Suspect]
     Dosage: 400 MG/M2 BLUS TEHN 2004 MG/M2 AS 46 HOURS INFUSION Q2W; INTRAVENOUS NOS
     Route: 042
     Dates: start: 20031224, end: 20031224
  3. (LEUCOVORIN) - SOLUTION - 350 MG [Suspect]
     Dosage: 350 MG Q2W; INTRAVENOUS NOS
     Route: 042
     Dates: start: 20031224, end: 20031224
  4. PRILOSEC [Concomitant]
  5. DIOVAN [Concomitant]
  6. POTASSIM CHLORIDE [Concomitant]
  7. VICODEN (HYDROCHODONEA TARTRATE+ PARACETAMOL) [Concomitant]
  8. SENEKOT (SNNA FRUIT) [Concomitant]
  9. ZOFRAN [Concomitant]
  10. CENTRUL SILVER [Concomitant]
  11. LYSENE (LYSENE) [Concomitant]
  12. PAXIL [Concomitant]
  13. ATIVAN [Concomitant]
  14. TIMOPTIC COLTRATE (TIMOLOL MALEATE) [Concomitant]
  15. ANMBIEN (ZOLPIDEM TARTRATE) [Concomitant]
  16. KYTRIL [Concomitant]
  17. COMPAZINE [Concomitant]
  18. ALPRAZOLAM [Concomitant]

REACTIONS (6)
  - CEREBRAL HAEMORRHAGE [None]
  - GRAND MAL CONVULSION [None]
  - HYPERTENSIVE ENCEPHALOPATHY [None]
  - NAUSEA [None]
  - NUCLEAR MAGNETIC RESONANCE IMAGING BRAIN ABNORMAL [None]
  - PETECHIAE [None]
